FAERS Safety Report 15836538 (Version 1)
Quarter: 2019Q1

REPORT INFORMATION
  Report Type: Spontaneous
  Country: US (occurrence: US)
  Receive Date: 20190117
  Receipt Date: 20190117
  Transmission Date: 20190417
  Serious: No
  Sender: FDA-Public Use
  Company Number: US-ASTRAZENECA-2019SE01727

PATIENT
  Sex: Female

DRUGS (2)
  1. BYETTA [Suspect]
     Active Substance: EXENATIDE
     Indication: DIABETES MELLITUS
     Dosage: 250 MCG / 2.4 ML PEN, 10 MCG TWO TIMES A DAY
     Route: 058
     Dates: start: 201712
  2. BYETTA [Suspect]
     Active Substance: EXENATIDE
     Indication: DIABETES MELLITUS
     Dosage: 250 MCG / 2.4 ML PEN, 5 MCG TWO TIMES A DAY
     Route: 058
     Dates: start: 201711, end: 201712

REACTIONS (5)
  - Vomiting [Not Recovered/Not Resolved]
  - Abdominal discomfort [Not Recovered/Not Resolved]
  - Blood glucose increased [Recovering/Resolving]
  - Hypophagia [Unknown]
  - Drug ineffective [Recovering/Resolving]
